FAERS Safety Report 6194082-7 (Version None)
Quarter: 2009Q2

REPORT INFORMATION
  Report Type: 
  Country: None (occurrence: None)
  Receive Date: 20090514
  Receipt Date: 20090430
  Transmission Date: 20091009
  Serious: Yes (Hospitalization)
  Sender: FDA-Public Use
  Company Number: DSM-2009-00584

PATIENT
  Age: 76 Year
  Sex: Female

DRUGS (6)
  1. OLMESARTAN MEDOXOMIL [Suspect]
     Indication: DRUG USE FOR UNKNOWN INDICATION
     Dosage: 20 MG (20 MG, 1 IN 1 D), ORAL
     Route: 048
  2. VASTAREL (TRIMETAZIDINE) (35 MILLIGRAM, TABLET) (TRIMETAZIDINE) [Suspect]
     Indication: DRUG USE FOR UNKNOWN INDICATION
     Dosage: 70 MG (35 MG, 2 IN 1 D), ORAL
     Route: 048
  3. CIBACENE (BENAZEPRIL HYDROCHLORIDE) (10 MILLIGRAM, TABLET) (BENAZEPRIL [Suspect]
     Indication: DRUG USE FOR UNKNOWN INDICATION
     Dosage: 20 MG, 10 MG, 2 IN 1 D), ORAL
     Route: 048
  4. LOVENOX (HEPARIN-FRACTION, SODIUM SALT (HEPARIN-FRACTION, SODIUM SALT) [Concomitant]
  5. HEXAQUINE (THIAMINE HYDROCHLORIDE, QUININE BENZOATE, MELALEUCA VIRIDIF [Concomitant]
  6. ACETAMINOPHEN [Concomitant]

REACTIONS (2)
  - FALL [None]
  - HUMERUS FRACTURE [None]
